FAERS Safety Report 6655202-0 (Version None)
Quarter: 2010Q1

REPORT INFORMATION
  Report Type: 
  Country: None (occurrence: None)
  Receive Date: 20100329
  Receipt Date: 20100318
  Transmission Date: 20100710
  Serious: Yes (Hospitalization)
  Sender: FDA-Public Use
  Company Number: US-JNJFOC-20100306256

PATIENT
  Sex: Male
  Weight: 43.09 kg

DRUGS (3)
  1. REMICADE [Suspect]
     Indication: CROHN'S DISEASE
     Dosage: 2 DOSES
     Route: 042
  2. METHADONE [Concomitant]
     Indication: BACK PAIN
     Dosage: 2-40 MG 2 X A DAY FOR 10 YEARS
  3. ATARAX [Concomitant]

REACTIONS (3)
  - CONSTIPATION [None]
  - DRUG INEFFECTIVE [None]
  - VOMITING [None]
